FAERS Safety Report 9069331 (Version 6)
Quarter: 2019Q3

REPORT INFORMATION
  Report Type: Spontaneous
  Country: FI (occurrence: FI)
  Receive Date: 20130215
  Receipt Date: 20190722
  Transmission Date: 20191005
  Serious: Yes (Hospitalization, Other)
  Sender: FDA-Public Use
  Company Number: FI-UCBSA-067049

PATIENT
  Age: 37 Year
  Sex: Female

DRUGS (25)
  1. ALBETOL [Concomitant]
     Active Substance: LABETALOL HYDROCHLORIDE
     Indication: HYPERTENSION
     Dosage: 100 G, 2X/DAY (BID)
     Dates: start: 20120817
  2. PHENYTOINE [Concomitant]
     Active Substance: PHENYTOIN
  3. AMOXIN COMP [Concomitant]
     Active Substance: AMOXICILLIN\CLAVULANIC ACID
     Indication: PNEUMONIA
     Dosage: UNKNOWN DOSE
     Dates: start: 20120820, end: 20120828
  4. KEPPRA [Suspect]
     Active Substance: LEVETIRACETAM
     Indication: STATUS EPILEPTICUS
     Dosage: 1000 MG
  5. KEPPRA [Suspect]
     Active Substance: LEVETIRACETAM
     Dosage: 1000 MG, 2X/DAY (BID)
     Dates: start: 20120729
  6. LACOSAMIDE. [Suspect]
     Active Substance: LACOSAMIDE
     Indication: OFF LABEL USE
     Dosage: 100 MG, 2X/DAY (BID)
     Dates: start: 20120730
  7. STESOLID [Concomitant]
     Active Substance: DIAZEPAM
     Indication: SEIZURE
     Dosage: 10 MG
  8. ATIVAN [Concomitant]
     Active Substance: LORAZEPAM
  9. HYDANTIN [Concomitant]
     Active Substance: PHENYTOIN
     Dosage: UNKNOWN DOSE
     Dates: start: 20120814, end: 20120910
  10. BIOPHILUS [Concomitant]
     Active Substance: DIETARY SUPPLEMENT\PROBIOTICS
     Indication: DIARRHOEA
     Dosage: UNKNOWN DOSE
     Dates: start: 20120820, end: 20120824
  11. KLEXANE [Suspect]
     Active Substance: ENOXAPARIN
     Indication: THROMBOSIS
     Dosage: 60 MG, 2X/DAY (BID)
  12. TAZOCIN [Concomitant]
     Active Substance: PIPERACILLIN SODIUM\TAZOBACTAM SODIUM
     Indication: PNEUMONIA
     Dosage: UNKNOWN DOSE
     Dates: end: 20120830
  13. LORAZEPAM. [Concomitant]
     Active Substance: LORAZEPAM
     Indication: MYOCLONUS
     Dosage: 6 MG
  14. LACOSAMIDE. [Suspect]
     Active Substance: LACOSAMIDE
     Indication: STATUS EPILEPTICUS
     Dosage: 150 MG, 2X/DAY (BID)
     Dates: start: 201207, end: 201207
  15. IV HEPARIN [Concomitant]
     Indication: THROMBOSIS
     Dosage: UNKNOWN DOSE
     Route: 042
     Dates: start: 20120728, end: 20120729
  16. PROPOFOL. [Concomitant]
     Active Substance: PROPOFOL
     Indication: PRODUCT USED FOR UNKNOWN INDICATION
     Dosage: UNKNOWN DOSE
  17. FOLVITE [Concomitant]
     Active Substance: FOLIC ACID
     Indication: HIGH RISK PREGNANCY
     Dosage: 4 MG, ONCE DAILY (QD)
     Dates: start: 20120816
  18. OBSIDAN [Concomitant]
     Indication: IRON DEFICIENCY ANAEMIA
     Dosage: UNKNOWN DOSE
     Dates: start: 20120815, end: 20120903
  19. PRO-EPANUTIN [Concomitant]
     Active Substance: FOSPHENYTOIN SODIUM
     Dosage: 600 MG
  20. MIDAZOLAM [Concomitant]
     Active Substance: MIDAZOLAM HYDROCHLORIDE
     Indication: PRODUCT USED FOR UNKNOWN INDICATION
     Dosage: UNKNOWN DOSE
  21. PRO-EPANUTIN [Concomitant]
     Active Substance: FOSPHENYTOIN SODIUM
     Indication: MYOCLONUS
     Dosage: 250 MG, 2X/DAY (BID)
     Dates: start: 20120729, end: 20120814
  22. KEPPRA [Suspect]
     Active Substance: LEVETIRACETAM
     Indication: OFF LABEL USE
     Dosage: 3000 MG
  23. KLEXANE [Suspect]
     Active Substance: ENOXAPARIN
     Dosage: 40 MG, 2X/DAY (BID)
     Dates: start: 20120729
  24. SOMAC [Concomitant]
     Active Substance: PANTOPRAZOLE SODIUM
     Indication: PROPHYLAXIS
     Dosage: UNKNOWN DOSE
     Dates: start: 20120729, end: 20120814
  25. CEFTRIAXONE. [Concomitant]
     Active Substance: CEFTRIAXONE
     Indication: PNEUMONIA
     Dosage: UNKNOWN DOSE

REACTIONS (5)
  - Maternal exposure during pregnancy [Unknown]
  - Premature delivery [Unknown]
  - Caesarean section [Unknown]
  - Maternal exposure during breast feeding [Unknown]
  - Off label use [Unknown]

NARRATIVE: CASE EVENT DATE: 201207
